FAERS Safety Report 17399198 (Version 14)
Quarter: 2025Q2

REPORT INFORMATION
  Report Type: Report from Study
  Country: US (occurrence: US)
  Receive Date: 20200210
  Receipt Date: 20250620
  Transmission Date: 20250716
  Serious: Yes (Hospitalization, Other)
  Sender: TAKEDA
  Company Number: US-SHIRE-US202005185

PATIENT
  Age: 80 Year
  Sex: Female
  Weight: 65 kg

DRUGS (44)
  1. HUMAN IMMUNOGLOBULIN G [Suspect]
     Active Substance: HUMAN IMMUNOGLOBULIN G
     Indication: Immunodeficiency common variable
     Dosage: 60 GRAM, Q4WEEKS
  2. HUMAN IMMUNOGLOBULIN G [Suspect]
     Active Substance: HUMAN IMMUNOGLOBULIN G
     Indication: Immunodeficiency
     Dosage: 60 GRAM, Q4WEEKS
     Dates: start: 20160309
  3. HUMAN IMMUNOGLOBULIN G [Suspect]
     Active Substance: HUMAN IMMUNOGLOBULIN G
     Dosage: 40 GRAM, Q4WEEKS
  4. ALBUTEROL [Concomitant]
     Active Substance: ALBUTEROL
  5. PREDNISONE [Concomitant]
     Active Substance: PREDNISONE
  6. AZITHROMYCIN [Concomitant]
     Active Substance: AZITHROMYCIN
  7. FEXOFENADINE [Concomitant]
     Active Substance: FEXOFENADINE HYDROCHLORIDE
  8. ACETAMINOPHEN [Concomitant]
     Active Substance: ACETAMINOPHEN
  9. DIPHENHYDRAMINE [Concomitant]
     Active Substance: DIPHENHYDRAMINE
  10. SODIUM CHLORIDE [Concomitant]
     Active Substance: SODIUM CHLORIDE
  11. EPINEPHRINE [Concomitant]
     Active Substance: EPINEPHRINE
  12. Lmx [Concomitant]
  13. IMBRUVICA [Concomitant]
     Active Substance: IBRUTINIB
  14. RANITIDINE [Concomitant]
     Active Substance: RANITIDINE
  15. VALTREX [Concomitant]
     Active Substance: VALACYCLOVIR HYDROCHLORIDE
  16. DEXILANT [Concomitant]
     Active Substance: DEXLANSOPRAZOLE
  17. SINGULAIR [Concomitant]
     Active Substance: MONTELUKAST SODIUM
  18. CYCLOBENZAPRINE [Concomitant]
     Active Substance: CYCLOBENZAPRINE
  19. ASPIRIN [Concomitant]
     Active Substance: ASPIRIN
  20. VITAMIN C [Concomitant]
     Active Substance: ASCORBIC ACID
  21. CALCIUM [Concomitant]
     Active Substance: CALCIUM
  22. COSAMIN [Concomitant]
  23. KEFLEX [Concomitant]
     Active Substance: CEPHALEXIN
  24. DIETARY SUPPLEMENT [Concomitant]
     Active Substance: DIETARY SUPPLEMENT
  25. VENCLEXTA [Concomitant]
     Active Substance: VENETOCLAX
  26. Neurivas [Concomitant]
  27. Calcium citrate plus [Concomitant]
  28. VITAMIN B COMPLEX [Concomitant]
     Active Substance: CYANOCOBALAMIN\DEXPANTHENOL\NIACINAMIDE\PYRIDOXINE HYDROCHLORIDE\RIBOFLAVIN 5^-PHOSPHATE SODIUM\THIA
  29. FEXOFENADINE HYDROCHLORIDE [Concomitant]
     Active Substance: FEXOFENADINE HYDROCHLORIDE
  30. PANTOPRAZOLE SODIUM [Concomitant]
     Active Substance: PANTOPRAZOLE SODIUM
  31. VITAMIN D3 [Concomitant]
     Active Substance: CHOLECALCIFEROL
  32. ATROVENT HFA [Concomitant]
     Active Substance: IPRATROPIUM BROMIDE
  33. DIPHENHYDRAMINE HYDROCHLORIDE [Concomitant]
     Active Substance: DIPHENHYDRAMINE HYDROCHLORIDE
  34. STIOLTO RESPIMAT [Concomitant]
     Active Substance: OLODATEROL HYDROCHLORIDE\TIOTROPIUM BROMIDE MONOHYDRATE
  35. VITAMINS [Concomitant]
     Active Substance: VITAMINS
  36. LISINOPRIL [Concomitant]
     Active Substance: LISINOPRIL
  37. CEFDINIR [Concomitant]
     Active Substance: CEFDINIR
  38. OXYBUTYNIN [Concomitant]
     Active Substance: OXYBUTYNIN
  39. METOPROLOL [Concomitant]
     Active Substance: METOPROLOL
  40. FAMOTIDINE [Concomitant]
     Active Substance: FAMOTIDINE
  41. FUROSEMIDE [Concomitant]
     Active Substance: FUROSEMIDE
  42. ZINC [Concomitant]
     Active Substance: ZINC
  43. POTASSIUM CHLORIDE [Concomitant]
     Active Substance: POTASSIUM CHLORIDE
  44. METOPROLOL SUCCINATE [Concomitant]
     Active Substance: METOPROLOL SUCCINATE

REACTIONS (12)
  - Lymphoma [Unknown]
  - Lower respiratory tract infection [Unknown]
  - Pneumonia [Unknown]
  - Lung adenocarcinoma [Unknown]
  - Cardiac failure [Unknown]
  - Urinary tract infection [Unknown]
  - Skin infection [Unknown]
  - Laryngeal dyskinesia [Unknown]
  - Nasopharyngitis [Unknown]
  - Dysphonia [Unknown]
  - Sinusitis [Not Recovered/Not Resolved]
  - Upper respiratory tract infection [Unknown]

NARRATIVE: CASE EVENT DATE: 20230224
